FAERS Safety Report 15283388 (Version 6)
Quarter: 2019Q2

REPORT INFORMATION
  Report Type: Spontaneous
  Country: US (occurrence: US)
  Receive Date: 20180816
  Receipt Date: 20190617
  Transmission Date: 20190711
  Serious: Yes (Other)
  Sender: FDA-Public Use
  Company Number: US-PFIZER INC-2018281494

PATIENT
  Age: 81 Year
  Sex: Female
  Weight: 60 kg

DRUGS (4)
  1. WARFARIN [Suspect]
     Active Substance: WARFARIN
     Dosage: 3 MG, UNK
  2. TOVIAZ [Suspect]
     Active Substance: FESOTERODINE FUMARATE
     Indication: HYPERTONIC BLADDER
     Dosage: 4 MG, 1X/DAY(AT NIGHT )
     Route: 048
     Dates: start: 201807
  3. BIOTENE NOS [Concomitant]
     Active Substance: CETYLPYRIDINIUM CHLORIDE OR SODIUM FLUORIDE OR SODIUM MONOFLUOROPHOSPHATE OR GLUCOSE OXIDASE\LACTOFERRIN\LACTOPEROXIDASE BOVINE\LYSOZYME
     Indication: DRY MOUTH
     Dosage: UNK
  4. ACYCLOVIR. [Concomitant]
     Active Substance: ACYCLOVIR
     Indication: HERPES OPHTHALMIC
     Dosage: 400 MG, DAILY
     Route: 048

REACTIONS (6)
  - Glaucoma [Unknown]
  - Therapeutic product effect incomplete [Not Recovered/Not Resolved]
  - Constipation [Unknown]
  - Gastrointestinal disorder [Unknown]
  - Pruritus [Not Recovered/Not Resolved]
  - Labelled drug-drug interaction medication error [Not Recovered/Not Resolved]

NARRATIVE: CASE EVENT DATE: 201807
